FAERS Safety Report 4724771-X (Version None)
Quarter: 2005Q3

REPORT INFORMATION
  Report Type: 
  Country: None (occurrence: None)
  Receive Date: 20050726
  Receipt Date: 20050720
  Transmission Date: 20060218
  Serious: Yes (Life-Threatening)
  Sender: FDA-Public Use
  Company Number: JP-GLAXOSMITHKLINE-B0388431A

PATIENT
  Age: 67 Year
  Sex: Male

DRUGS (2)
  1. ZANTAC [Suspect]
     Indication: GASTRITIS
     Dosage: 150MG PER DAY
     Route: 048
     Dates: start: 20050630, end: 20050630
  2. MUCOSTA [Concomitant]
     Indication: GASTRITIS
     Dosage: 100MG THREE TIMES PER DAY
     Route: 048
     Dates: start: 20050630, end: 20050707

REACTIONS (2)
  - RASH [None]
  - RESPIRATORY DISORDER [None]
